FAERS Safety Report 8112335-X (Version None)
Quarter: 2012Q1

REPORT INFORMATION
  Report Type: 
  Country: None (occurrence: None)
  Receive Date: 20120203
  Receipt Date: 20111027
  Transmission Date: 20120608
  Serious: No
  Sender: FDA-Public Use
  Company Number: US-ASTRAZENECA-2011SE65183

PATIENT
  Age: 54 Year
  Sex: Female

DRUGS (3)
  1. IRON SUPPLIMENT [Concomitant]
  2. VANDETANIB [Suspect]
     Indication: THYROID CANCER
     Route: 048
  3. SYNTHROID [Concomitant]

REACTIONS (3)
  - RASH [None]
  - OEDEMA PERIPHERAL [None]
  - PARAESTHESIA [None]
